FAERS Safety Report 9885957 (Version 1)
Quarter: 2014Q1

REPORT INFORMATION
  Report Type: Spontaneous
  Country: US (occurrence: US)
  Receive Date: 20140210
  Receipt Date: 20140210
  Transmission Date: 20141002
  Serious: Yes (Other)
  Sender: FDA-Public Use
  Company Number: US-GLAXOSMITHKLINE-A1060304A

PATIENT
  Age: 61 Year
  Sex: Male

DRUGS (1)
  1. ARIXTRA [Suspect]
     Indication: ILL-DEFINED DISORDER
     Dosage: 7.5MG UNKNOWN
     Route: 042

REACTIONS (2)
  - Lung neoplasm malignant [Not Recovered/Not Resolved]
  - Chemotherapy [Not Recovered/Not Resolved]
